FAERS Safety Report 13492917 (Version 2)
Quarter: 2017Q2

REPORT INFORMATION
  Report Type: Spontaneous
  Country: JP (occurrence: JP)
  Receive Date: 20170427
  Receipt Date: 20170514
  Transmission Date: 20170830
  Serious: Yes (Death, Other)
  Sender: FDA-Public Use
  Company Number: PHJP2017JP014242

PATIENT
  Sex: Male

DRUGS (1)
  1. VOTRIENT [Suspect]
     Active Substance: PAZOPANIB HYDROCHLORIDE
     Indication: SYNOVIAL SARCOMA
     Route: 048

REACTIONS (3)
  - Malignant neoplasm progression [Fatal]
  - Pneumothorax [Not Recovered/Not Resolved]
  - Synovial sarcoma [Fatal]
